FAERS Safety Report 19301401 (Version 2)
Quarter: 2021Q2

REPORT INFORMATION
  Report Type: Spontaneous
  Country: US (occurrence: US)
  Receive Date: 20210525
  Receipt Date: 20210630
  Transmission Date: 20210717
  Serious: No
  Sender: FDA-Public Use
  Company Number: US-SA-2021SA171250

PATIENT
  Sex: Male

DRUGS (1)
  1. DUPIXENT [Suspect]
     Active Substance: DUPILUMAB
     Dosage: 300 MG, QOW
     Route: 058

REACTIONS (5)
  - Rash [Unknown]
  - Therapeutic response decreased [Unknown]
  - Injection site mass [Unknown]
  - Wrong technique in device usage process [Unknown]
  - Dermatitis atopic [Unknown]
